FAERS Safety Report 5361565-9 (Version None)
Quarter: 2007Q2

REPORT INFORMATION
  Report Type: 
  Country: None (occurrence: None)
  Receive Date: 20070619
  Receipt Date: 20070608
  Transmission Date: 20071010
  Serious: Yes (Other)
  Sender: FDA-Public Use
  Company Number: DE-JNJFOC-20070505009

PATIENT
  Age: 78 Year
  Sex: Female

DRUGS (3)
  1. TAVANIC [Suspect]
     Indication: DRUG USE FOR UNKNOWN INDICATION
     Route: 065
  2. NEUROCIL [Suspect]
     Indication: DRUG USE FOR UNKNOWN INDICATION
     Route: 065
  3. AREDIA [Suspect]
     Indication: SENILE OSTEOPOROSIS
     Route: 042

REACTIONS (1)
  - CHOLESTASIS [None]
